FAERS Safety Report 5196487-X (Version None)
Quarter: 2006Q4

REPORT INFORMATION
  Report Type: 
  Country: None (occurrence: None)
  Receive Date: 20061227
  Receipt Date: 20061212
  Transmission Date: 20070319
  Serious: Yes (Hospitalization)
  Sender: FDA-Public Use
  Company Number: 2006JP005284

PATIENT
  Age: 36 Year
  Sex: Male

DRUGS (4)
  1. PROGRAF [Suspect]
     Dates: start: 20060619
  2. CYCLOSPORINE [Suspect]
     Dosage: ORAL
     Route: 048
     Dates: start: 20060406, end: 20060619
  3. MYCOPHENOLATE MOFETIL [Suspect]
     Dates: start: 20060406
  4. PREDNISONE [Suspect]

REACTIONS (5)
  - HEPATIC LESION [None]
  - LUNG NEOPLASM [None]
  - LYMPHOPROLIFERATIVE DISORDER [None]
  - NON-HODGKIN'S LYMPHOMA [None]
  - URETERIC STENOSIS [None]
